FAERS Safety Report 13445590 (Version 1)
Quarter: 2017Q2

REPORT INFORMATION
  Report Type: Spontaneous
  Country: US (occurrence: US)
  Receive Date: 20170415
  Receipt Date: 20170415
  Transmission Date: 20170830
  Serious: No
  Sender: FDA-Public Use
  Company Number: US-BION-005893

PATIENT
  Age: 72 Year
  Sex: Male
  Weight: 80.29 kg

DRUGS (2)
  1. PERCOCET [Concomitant]
     Active Substance: ACETAMINOPHEN\OXYCODONE HYDROCHLORIDE
  2. ALEVE [Suspect]
     Active Substance: NAPROXEN SODIUM
     Indication: PAIN
     Dates: start: 20170109

REACTIONS (6)
  - Device use issue [Not Recovered/Not Resolved]
  - Somnolence [Unknown]
  - Contraindicated device used [Not Recovered/Not Resolved]
  - Incorrect dose administered [Not Recovered/Not Resolved]
  - Incorrect drug administration duration [Not Recovered/Not Resolved]
  - Medical device monitoring error [Not Recovered/Not Resolved]

NARRATIVE: CASE EVENT DATE: 2015
